FAERS Safety Report 7389277-0 (Version None)
Quarter: 2011Q2

REPORT INFORMATION
  Report Type: 
  Country: None (occurrence: None)
  Receive Date: 20110401
  Receipt Date: 20110329
  Transmission Date: 20111010
  Serious: Yes (Hospitalization)
  Sender: FDA-Public Use
  Company Number: IT-BAYER-2011-027334

PATIENT
  Sex: Female

DRUGS (7)
  1. QUINAZIL [Concomitant]
  2. ATENOLOL [Concomitant]
  3. VOLTAREN [Suspect]
     Indication: SCIATICA
     Dosage: 1 DF, QD
     Route: 030
     Dates: start: 20110105, end: 20110111
  4. IGROTON [Concomitant]
  5. LORAZEPAM [Concomitant]
  6. ASPIRIN [Suspect]
     Dosage: 100 MG, QD
     Route: 048
     Dates: start: 20090101, end: 20110111
  7. MUSCORIL [Concomitant]

REACTIONS (3)
  - DUODENAL ULCER [None]
  - ANAEMIA [None]
  - GASTROINTESTINAL HAEMORRHAGE [None]
